FAERS Safety Report 7653898-8 (Version None)
Quarter: 2011Q3

REPORT INFORMATION
  Report Type: 
  Country: None (occurrence: None)
  Receive Date: 20110803
  Receipt Date: 20110728
  Transmission Date: 20111222
  Serious: Yes (Other)
  Sender: FDA-Public Use
  Company Number: GB-AMGEN-GBRSP2011038271

PATIENT
  Sex: Female

DRUGS (3)
  1. NEULASTA [Suspect]
     Indication: CHEMOTHERAPY
     Dosage: UNK
     Dates: start: 20070101
  2. FERRITIN [Concomitant]
  3. DOCETAXEL [Concomitant]

REACTIONS (4)
  - SKIN SWELLING [None]
  - TACHYCARDIA [None]
  - ASTHENIA [None]
  - ERYTHEMA [None]
